FAERS Safety Report 5987700-7 (Version None)
Quarter: 2008Q4

REPORT INFORMATION
  Report Type: 
  Country: None (occurrence: None)
  Receive Date: 20081209
  Receipt Date: 20081205
  Transmission Date: 20090506
  Serious: Yes (Death, Hospitalization)
  Sender: FDA-Public Use
  Company Number: FR-B.I. PHARMACEUTICALS,INC./RIDGEFIELD-2008-FF-00877FF

PATIENT
  Sex: Female

DRUGS (8)
  1. MICARDIS HCT [Suspect]
     Route: 048
     Dates: start: 20080506, end: 20081120
  2. LYRICA [Concomitant]
     Dosage: 50MG
     Route: 048
     Dates: start: 20081108, end: 20081115
  3. LYRICA [Concomitant]
     Dosage: 100MG
     Route: 048
     Dates: start: 20081115, end: 20081117
  4. DIANTALVIC [Concomitant]
     Route: 048
     Dates: start: 20081108, end: 20081117
  5. CRESTOR [Concomitant]
  6. KARDEGIC [Concomitant]
  7. KERLONE [Concomitant]
  8. LEVOTHYROX [Concomitant]

REACTIONS (2)
  - CONFUSIONAL STATE [None]
  - HYPONATRAEMIA [None]
